FAERS Safety Report 8474814 (Version 3)
Quarter: 2013Q3

REPORT INFORMATION
  Report Type: Spontaneous
  Country: JP (occurrence: JP)
  Receive Date: 20120323
  Receipt Date: 20130715
  Transmission Date: 20140515
  Serious: Yes (Hospitalization)
  Sender: FDA-Public Use
  Company Number: JP-ELI_LILLY_AND_COMPANY-JP201202007318

PATIENT
  Age: 77 Year
  Sex: Female
  Weight: 53 kg

DRUGS (10)
  1. ALIMTA [Suspect]
     Indication: LUNG ADENOCARCINOMA STAGE IV
     Dosage: 300 MG/M2, OTHER
     Route: 042
     Dates: start: 20110207, end: 20110430
  2. CARBOPLATIN [Concomitant]
     Indication: LUNG ADENOCARCINOMA STAGE IV
     Dosage: 300 MG/M2, OTHER
     Route: 042
     Dates: start: 20110207, end: 20110430
  3. CARBOPLATIN [Concomitant]
     Dosage: 300 MG, OTHER
     Route: 042
     Dates: start: 20111120
  4. PANVITAN [Concomitant]
     Indication: PROPHYLAXIS
     Dosage: UNK
     Route: 048
     Dates: start: 20110207, end: 20110520
  5. NORVASC [Concomitant]
     Indication: HYPERTENSION
     Dosage: UNK
     Route: 048
     Dates: start: 20100214
  6. CARDENALIN [Concomitant]
     Indication: HYPERTENSION
     Dosage: UNK
     Route: 048
     Dates: start: 20100214
  7. METHYCOBAL [Concomitant]
     Indication: TRIGEMINAL NEURALGIA
     Dosage: UNK
     Route: 048
     Dates: start: 20100214
  8. DEPAS [Concomitant]
     Indication: INSOMNIA
     Dosage: UNK
     Route: 048
     Dates: start: 20100214
  9. CRESTOR [Concomitant]
     Indication: HYPERLIPIDAEMIA
     Dosage: UNK
     Route: 048
     Dates: start: 20100214
  10. OMEPRAL [Concomitant]
     Indication: PROPHYLAXIS
     Dosage: UNK
     Route: 048
     Dates: start: 20110207

REACTIONS (2)
  - Rheumatoid arthritis [Recovering/Resolving]
  - Interstitial lung disease [Recovering/Resolving]
